FAERS Safety Report 7438285-X (Version None)
Quarter: 2011Q2

REPORT INFORMATION
  Report Type: 
  Country: None (occurrence: None)
  Receive Date: 20110426
  Receipt Date: 20110414
  Transmission Date: 20111010
  Serious: Yes (Other)
  Sender: FDA-Public Use
  Company Number: JP-SANOFI-AVENTIS-2011SA022890

PATIENT
  Age: 57 Year
  Sex: Female

DRUGS (3)
  1. ALLEGRA [Suspect]
     Indication: URTICARIA
     Route: 048
     Dates: start: 20110407, end: 20110414
  2. APOPLON [Suspect]
     Route: 048
  3. ALL OTHER THERAPEUTIC PRODUCTS [Suspect]
     Route: 048
     Dates: start: 20110101, end: 20110101

REACTIONS (1)
  - LIVER DISORDER [None]
